FAERS Safety Report 6018554-0 (Version None)
Quarter: 2008Q4

REPORT INFORMATION
  Report Type: 
  Country: None (occurrence: None)
  Receive Date: 20081223
  Receipt Date: 20081218
  Transmission Date: 20090506
  Serious: Yes (Hospitalization, Other)
  Sender: FDA-Public Use
  Company Number: US-B.I. PHARMACEUTICALS,INC./RIDGEFIELD-2008-BP-18940BP

PATIENT
  Sex: Female

DRUGS (2)
  1. SPIRIVA [Suspect]
     Indication: ASTHMA
     Dosage: 18MCG
     Route: 055
     Dates: start: 20040101, end: 20081211
  2. ADVAIR DISKUS 250/50 [Concomitant]
     Indication: ASTHMA
     Route: 055

REACTIONS (2)
  - BLADDER CANCER [None]
  - HAEMOPTYSIS [None]
